FAERS Safety Report 12940934 (Version 1)
Quarter: 2016Q4

REPORT INFORMATION
  Report Type: Spontaneous
  Country: US (occurrence: US)
  Receive Date: 20161115
  Receipt Date: 20161115
  Transmission Date: 20170207
  Serious: Yes (Hospitalization)
  Sender: FDA-Public Use
  Company Number: None

PATIENT
  Age: 72 Year
  Sex: Female
  Weight: 93.1 kg

DRUGS (11)
  1. SOLU-MEDROL [Suspect]
     Active Substance: METHYLPREDNISOLONE SODIUM SUCCINATE
     Indication: RESPIRATORY FAILURE
     Dosage: SOLUMEDROL - 60MHG IV Q6HRS - DATES OF USE [RECENT]
     Route: 042
  2. HUMALOG [Concomitant]
     Active Substance: INSULIN LISPRO
  3. COLACE [Concomitant]
     Active Substance: DOCUSATE SODIUM
  4. BISACODYL. [Concomitant]
     Active Substance: BISACODYL
  5. LASIX [Concomitant]
     Active Substance: FUROSEMIDE
  6. CARDIZEM [Concomitant]
     Active Substance: DILTIAZEM HYDROCHLORIDE
  7. CUSOPT [Concomitant]
  8. XALATAN [Concomitant]
     Active Substance: LATANOPROST
  9. DUONEB [Concomitant]
     Active Substance: ALBUTEROL SULFATE\IPRATROPIUM BROMIDE
  10. LEXAPRO [Concomitant]
     Active Substance: ESCITALOPRAM OXALATE
  11. LANTUS [Concomitant]
     Active Substance: INSULIN GLARGINE

REACTIONS (2)
  - Diabetic ketoacidosis [None]
  - Diabetes mellitus [None]

NARRATIVE: CASE EVENT DATE: 20160113
